FAERS Safety Report 21972275 (Version 1)
Quarter: 2023Q1

REPORT INFORMATION
  Report Type: Spontaneous
  Country: US (occurrence: None)
  Receive Date: 20230207
  Receipt Date: 20230207
  Transmission Date: 20230418
  Serious: Yes (Other)
  Sender: FDA-Public Use
  Company Number: None

PATIENT
  Age: 33 Year
  Sex: Female

DRUGS (1)
  1. LACTULOSE [Suspect]
     Active Substance: LACTULOSE
     Dosage: OTHER STRENGTH : 10/15 GM/ML;?FREQUENCY : TWICE A DAY;?
     Route: 048

REACTIONS (4)
  - Product dispensing error [None]
  - Product label on wrong product [None]
  - Wrong product administered [None]
  - Change in seizure presentation [None]

NARRATIVE: CASE EVENT DATE: 20221220
